FAERS Safety Report 5530852-3 (Version None)
Quarter: 2007Q4

REPORT INFORMATION
  Report Type: 
  Country: None (occurrence: None)
  Receive Date: 20071130
  Receipt Date: 20070705
  Transmission Date: 20080405
  Serious: Yes (Hospitalization)
  Sender: FDA-Public Use
  Company Number: US-SANOFI-SYNTHELABO-F03200500159

PATIENT
  Age: 63 Year
  Sex: Female
  Weight: 65 kg

DRUGS (3)
  1. GEMCITABINE [Suspect]
     Indication: ADENOCARCINOMA PANCREAS
     Dosage: 1000 MG/M2 (TOTAL DOSE 1670 MG) IV, DAY 1 AND 15, EVERY 28 DAYS
     Route: 042
     Dates: start: 20050909, end: 20050929
  2. BEVACIZUMAB [Suspect]
     Indication: ADENOCARCINOMA PANCREAS
     Dosage: 10 MG/KG (TOTAL DOSE 650 MG) IV, DAY 1 AND 15, EVERY 28 DAYS
     Route: 042
     Dates: start: 20050909, end: 20050929
  3. OXALIPLATIN [Suspect]
     Indication: ADENOCARCINOMA PANCREAS
     Dosage: 100 MG/M2 (TOTAL DOSE 167 MG)  IV, DAY 2 AND 16, EVERY 28 DAYS
     Route: 042
     Dates: start: 20050930, end: 20050930

REACTIONS (4)
  - AGITATION [None]
  - CEREBRAL ISCHAEMIA [None]
  - DEPRESSION [None]
  - NEUROPATHY [None]
